FAERS Safety Report 5714754-5 (Version None)
Quarter: 2008Q2

REPORT INFORMATION
  Report Type: 
  Country: None (occurrence: None)
  Receive Date: 20080423
  Receipt Date: 20060217
  Transmission Date: 20081010
  Serious: Yes (Death, Hospitalization, Other)
  Sender: FDA-Public Use
  Company Number: US-ROCHE-434896

PATIENT
  Sex: Male
  Weight: 110 kg

DRUGS (8)
  1. CAPECITABINE [Suspect]
     Indication: OESOPHAGEAL CANCER METASTATIC
     Dosage: D1-14 OF 21 DAY CYCLE
     Route: 048
     Dates: start: 20050421
  2. CISPLATIN [Suspect]
     Indication: OESOPHAGEAL CANCER METASTATIC
     Dosage: D1 AND D8 OF 21 DAY CYCLE
     Route: 042
     Dates: start: 20050420
  3. IRINOTECAN HCL [Suspect]
     Indication: OESOPHAGEAL CANCER METASTATIC
     Dosage: D1 AND D8 OF 21 DAY CYCLE.
     Route: 042
     Dates: start: 20050420
  4. NEXIUM [Concomitant]
  5. DECADRON [Concomitant]
  6. ZOFRAN [Concomitant]
  7. ASPIRIN [Concomitant]
  8. COMPAZINE [Concomitant]

REACTIONS (4)
  - BRAIN ABSCESS [None]
  - DEATH [None]
  - HYPONATRAEMIA [None]
  - INAPPROPRIATE ANTIDIURETIC HORMONE SECRETION [None]
